FAERS Safety Report 5827856-X (Version None)
Quarter: 2008Q3

REPORT INFORMATION
  Report Type: 
  Country: None (occurrence: None)
  Receive Date: 20080728
  Receipt Date: 20080711
  Transmission Date: 20090109
  Serious: Yes (Other)
  Sender: FDA-Public Use
  Company Number: FABR-12093

PATIENT
  Age: 27 Year
  Sex: Male
  Weight: 69.9 kg

DRUGS (4)
  1. FABRAZYME [Suspect]
     Indication: FABRY'S DISEASE
     Dosage: 70 MG, Q2W, INTRAVENOUS
     Route: 042
     Dates: start: 20030901
  2. PREDNISONE [Concomitant]
  3. CHLORPHENIRAMINE MALEATE [Concomitant]
  4. ACETAMINOPHEN [Concomitant]

REACTIONS (5)
  - EYELID OEDEMA [None]
  - NAUSEA [None]
  - PARAESTHESIA ORAL [None]
  - RASH ERYTHEMATOUS [None]
  - URTICARIA [None]
